FAERS Safety Report 8806836 (Version 1)
Quarter: 2012Q4

REPORT INFORMATION
  Report Type: 
  Country: US (occurrence: US)
  Receive Date: 20120925
  Receipt Date: 20120925
  Transmission Date: 20130627
  Serious: Yes (Other)
  Sender: FDA-Public Use
  Company Number: US-ELI_LILLY_AND_COMPANY-US201209005332

PATIENT
  Sex: Female

DRUGS (2)
  1. EFFIENT [Suspect]
     Indication: STENT PLACEMENT
     Dosage: UNK, unknown
     Route: 065
  2. EFFIENT [Suspect]
     Dosage: UNK, unknown
     Route: 065

REACTIONS (2)
  - Thrombosis in device [Recovered/Resolved]
  - Drug dose omission [Unknown]
